FAERS Safety Report 9922089 (Version 2)
Quarter: 2014Q1

REPORT INFORMATION
  Report Type: Spontaneous
  Country: US (occurrence: US)
  Receive Date: 20140225
  Receipt Date: 20140225
  Transmission Date: 20141002
  Serious: No
  Sender: FDA-Public Use
  Company Number: US-BAXTER-2013BAX017835

PATIENT
  Sex: Male
  Weight: 15 kg

DRUGS (2)
  1. FEIBA NF [Suspect]
     Indication: HAEMOPHILIA
     Dosage: 90-91 UNITS/KG
     Route: 042
     Dates: end: 2013
  2. FEIBA NF [Suspect]
     Dosage: 90-91 UNITS/KG
     Route: 042
     Dates: start: 2013

REACTIONS (1)
  - Headache [Recovered/Resolved]
